FAERS Safety Report 5645228-8 (Version None)
Quarter: 2008Q1

REPORT INFORMATION
  Report Type: 
  Country: None (occurrence: None)
  Receive Date: 20080229
  Receipt Date: 20080218
  Transmission Date: 20080703
  Serious: Yes (Other)
  Sender: FDA-Public Use
  Company Number: FR-JNJFOC-20080203773

PATIENT
  Sex: Female

DRUGS (4)
  1. EPITOMAX [Suspect]
     Indication: EPILEPSY
  2. OMEPRAZOLE [Interacting]
     Indication: DRUG USE FOR UNKNOWN INDICATION
  3. BI-PROFENID [Interacting]
     Indication: DRUG USE FOR UNKNOWN INDICATION
  4. RANITIDINE [Concomitant]
     Indication: DRUG USE FOR UNKNOWN INDICATION

REACTIONS (2)
  - CONVULSION [None]
  - DRUG INTERACTION [None]
